FAERS Safety Report 10382847 (Version 2)
Quarter: 2021Q3

REPORT INFORMATION
  Report Type: Spontaneous
  Country: US (occurrence: US)
  Receive Date: 20140813
  Receipt Date: 20210804
  Transmission Date: 20211014
  Serious: No
  Sender: FDA-Public Use
  Company Number: US-SA-2013SA129345

PATIENT
  Age: 40 Year
  Sex: Male

DRUGS (2)
  1. FABRAZYME [Suspect]
     Active Substance: AGALSIDASE BETA
     Indication: FABRY^S DISEASE
     Dosage: UNK UNK,UNK
     Route: 042
  2. FABRAZYME [Suspect]
     Active Substance: AGALSIDASE BETA
     Dosage: 90 MG, QOW
     Route: 042
     Dates: start: 20201209

REACTIONS (1)
  - Influenza [Unknown]

NARRATIVE: CASE EVENT DATE: 201311
